FAERS Safety Report 25442608 (Version 1)
Quarter: 2025Q2

REPORT INFORMATION
  Report Type: Spontaneous
  Country: GB (occurrence: GB)
  Receive Date: 20250617
  Receipt Date: 20250617
  Transmission Date: 20250716
  Serious: Yes (Other)
  Sender: MERCK SHARP & DOHME LLC
  Company Number: None

PATIENT
  Age: 1 Year
  Sex: Male

DRUGS (3)
  1. MEASLES-MUMPS-RUBELLA-VARICELLA VIRUS VACCINE, LIVE [Suspect]
     Active Substance: MEASLES-MUMPS-RUBELLA-VARICELLA VIRUS VACCINE, LIVE
     Dates: start: 20250513, end: 20250513
  2. STERILE DILUENT (WATER) [Suspect]
     Active Substance: WATER
     Dates: start: 20250513, end: 20250513
  3. MEASLES-MUMPS-RUBELLA-VARICELLA VIRUS VACCINE, LIVE [Suspect]
     Active Substance: MEASLES-MUMPS-RUBELLA-VARICELLA VIRUS VACCINE, LIVE
     Dates: start: 20250513, end: 20250513

REACTIONS (3)
  - Pyrexia [Recovered/Resolved]
  - Lymphadenopathy [Not Recovered/Not Resolved]
  - Swelling [Unknown]

NARRATIVE: CASE EVENT DATE: 20250606
